FAERS Safety Report 5593181-8 (Version None)
Quarter: 2008Q1

REPORT INFORMATION
  Report Type: 
  Country: None (occurrence: None)
  Receive Date: 20080115
  Receipt Date: 20080115
  Transmission Date: 20080703
  Serious: Yes (Death)
  Sender: FDA-Public Use
  Company Number: None

PATIENT
  Sex: Female
  Weight: 103 kg

DRUGS (5)
  1. CYCLOPHOSPHAMIDE [Suspect]
     Dosage: 2500 MG
     Dates: end: 20051217
  2. DAUNORUBICIN HCL [Suspect]
     Dosage: 510 MG
     Dates: end: 20051219
  3. DEXAMETHASONE TAB [Suspect]
     Dosage: 140 MG
     Dates: end: 20051223
  4. ELSPAR [Suspect]
     Dosage: 25000 MG
     Dates: end: 20051224
  5. VINCRISTINE SULFATE [Suspect]
     Dosage: 4 MG
     Dates: end: 20051224

REACTIONS (6)
  - ASPIRATION [None]
  - CARDIAC ARREST [None]
  - EPISTAXIS [None]
  - HAEMATEMESIS [None]
  - RENAL FAILURE ACUTE [None]
  - SEPTIC SHOCK [None]
